FAERS Safety Report 5320580-1 (Version None)
Quarter: 2007Q2

REPORT INFORMATION
  Report Type: 
  Country: None (occurrence: None)
  Receive Date: 20070209
  Receipt Date: 20061031
  Transmission Date: 20071010
  Serious: No
  Sender: FDA-Public Use
  Company Number: 200619000US

PATIENT
  Sex: Female

DRUGS (5)
  1. APIDRA [Suspect]
     Dosage: 70 U
     Dates: start: 20061031, end: 20061031
  2. APIDRA [Suspect]
     Dosage: 30 U
     Dates: start: 20061029
  3. LANTUS [Suspect]
     Dosage: 70 U
     Dates: start: 20061029
  4. OPTICLIK [Suspect]
     Dosage: 70 U
     Dates: start: 20061029
  5. OPTICLIK [Suspect]
     Dates: start: 20061029

REACTIONS (1)
  - NO ADVERSE EFFECT [None]
